FAERS Safety Report 7927479-2 (Version None)
Quarter: 2011Q4

REPORT INFORMATION
  Report Type: 
  Country: None (occurrence: None)
  Receive Date: 20111118
  Receipt Date: 20111104
  Transmission Date: 20120403
  Serious: Yes (Hospitalization)
  Sender: FDA-Public Use
  Company Number: JP-UCBSA-044978

PATIENT
  Age: 66 Year
  Sex: Female

DRUGS (7)
  1. LANSOPRAZOLE [Concomitant]
  2. ROSUVASTATIN CALCIUM [Concomitant]
     Dosage: DAILY DOSE:5 MG (QOD)
     Dates: start: 20110927
  3. CERTOLIZUMAB PEGOL [Suspect]
     Indication: RHEUMATOID ARTHRITIS
     Route: 058
     Dates: start: 20090415
  4. TRIAZOLAM [Concomitant]
  5. CERTOLIZUMAB PEGOL [Suspect]
     Route: 058
  6. DICLOFENAC SODIUM [Concomitant]
     Dosage: DAILY DOSE:AS NEEDED
     Dates: start: 20110607
  7. SULFASALAZINE [Concomitant]

REACTIONS (2)
  - WRIST DEFORMITY [None]
  - OSTEOARTHRITIS [None]
